FAERS Safety Report 16902406 (Version 1)
Quarter: 2019Q4

REPORT INFORMATION
  Report Type: Spontaneous
  Country: FI (occurrence: FI)
  Receive Date: 20191010
  Receipt Date: 20191010
  Transmission Date: 20200122
  Serious: Yes (Other)
  Sender: FDA-Public Use
  Company Number: FI-SA-2019SA273865

PATIENT
  Age: 22 Year
  Sex: Female

DRUGS (4)
  1. STILNOCT [Suspect]
     Active Substance: ZOLPIDEM TARTRATE
     Indication: INSOMNIA
     Dosage: 10 MG, QD
     Route: 048
     Dates: start: 20190507
  2. NARAMIG [Concomitant]
     Active Substance: NARATRIPTAN HYDROCHLORIDE
     Indication: MIGRAINE
     Dosage: UNK (AS NECESSARY)
     Route: 065
  3. MELATONIN VITABALANS [Concomitant]
     Indication: INSOMNIA
     Dosage: UNK
     Route: 065
  4. FROVATRIPTAN SANDOZ [Concomitant]
     Indication: MIGRAINE
     Dosage: UNK (AS NECESSARY)
     Route: 065

REACTIONS (5)
  - Amnesia [Recovered/Resolved]
  - Confusional state [Recovered/Resolved]
  - Hallucination [Recovered/Resolved]
  - Intentional self-injury [Recovered/Resolved]
  - Sudden onset of sleep [Recovered/Resolved]

NARRATIVE: CASE EVENT DATE: 20190507
